FAERS Safety Report 10705372 (Version 2)
Quarter: 2017Q2

REPORT INFORMATION
  Report Type: Report from Study
  Country: US (occurrence: US)
  Receive Date: 20150112
  Receipt Date: 20170623
  Transmission Date: 20170829
  Serious: Yes (Death, Other)
  Sender: FDA-Public Use
  Company Number: US-TEVA-533365USA

PATIENT

DRUGS (13)
  1. VINCRISTINE [Suspect]
     Active Substance: VINCRISTINE
     Indication: NON-HODGKIN^S LYMPHOMA
     Dosage: UNK, UNKNOWN FREQ.
     Route: 065
  2. RITUXIMAB [Suspect]
     Active Substance: RITUXIMAB
     Indication: NON-HODGKIN^S LYMPHOMA
     Dosage: UNK, UNKNOWN FREQ.
     Route: 065
  3. CYCLOPHOSPHAMIDE. [Suspect]
     Active Substance: CYCLOPHOSPHAMIDE
     Indication: MANTLE CELL LYMPHOMA
  4. PREDNISONE. [Suspect]
     Active Substance: PREDNISONE
     Indication: MANTLE CELL LYMPHOMA
  5. PREDNISONE. [Suspect]
     Active Substance: PREDNISONE
     Indication: NON-HODGKIN^S LYMPHOMA
     Dosage: UNK, UNKNOWN FREQ.
     Route: 065
  6. RITUXIMAB [Suspect]
     Active Substance: RITUXIMAB
     Indication: MANTLE CELL LYMPHOMA
  7. DOXORUBICIN [Suspect]
     Active Substance: DOXORUBICIN
     Indication: NON-HODGKIN^S LYMPHOMA
     Dosage: UNK UNK, UNKNOWN FREQ.
     Route: 042
  8. VINCRISTINE [Suspect]
     Active Substance: VINCRISTINE
     Indication: MANTLE CELL LYMPHOMA
  9. CYCLOPHOSPHAMIDE. [Suspect]
     Active Substance: CYCLOPHOSPHAMIDE
     Indication: NON-HODGKIN^S LYMPHOMA
     Dosage: UNK, UNKNOWN FREQ.
     Route: 065
  10. TREANDA [Suspect]
     Active Substance: BENDAMUSTINE HYDROCHLORIDE
     Indication: NON-HODGKIN^S LYMPHOMA
     Dosage: UNK, UNKNOWN FREQ.
     Route: 042
  11. DOXORUBICIN [Suspect]
     Active Substance: DOXORUBICIN
     Indication: MANTLE CELL LYMPHOMA
  12. TREANDA [Suspect]
     Active Substance: BENDAMUSTINE HYDROCHLORIDE
     Indication: MANTLE CELL LYMPHOMA
  13. TREANDA [Suspect]
     Active Substance: BENDAMUSTINE HYDROCHLORIDE
     Indication: CHRONIC LYMPHOCYTIC LEUKAEMIA

REACTIONS (39)
  - Disease progression [Unknown]
  - Drug hypersensitivity [Unknown]
  - Decreased appetite [Unknown]
  - Constipation [Unknown]
  - Arthralgia [Unknown]
  - Viral upper respiratory tract infection [Unknown]
  - Dysgeusia [Unknown]
  - Blood disorder [Unknown]
  - Paraesthesia [Unknown]
  - Thrombocytopenia [Unknown]
  - Hypersensitivity [Unknown]
  - Respiratory disorder [Unknown]
  - Leukopenia [Unknown]
  - Rash [Unknown]
  - Dyspepsia [Unknown]
  - Malaise [Unknown]
  - Diarrhoea [Unknown]
  - Erythema [Unknown]
  - Death [Fatal]
  - Infusion related reaction [Unknown]
  - Neuropathy peripheral [Unknown]
  - Opportunistic infection [Unknown]
  - Lymphopenia [Unknown]
  - Nausea [Unknown]
  - Chills [Unknown]
  - Headache [Unknown]
  - Condition aggravated [Unknown]
  - Febrile neutropenia [Unknown]
  - Neutropenia [Unknown]
  - Anxiety [Unknown]
  - Infection [Unknown]
  - Alopecia [Unknown]
  - Hypersensitivity [Unknown]
  - Fatigue [Unknown]
  - Vomiting [Unknown]
  - Anaemia [Unknown]
  - Pyrexia [Unknown]
  - Pruritus [Unknown]
  - Myalgia [Unknown]

NARRATIVE: CASE EVENT DATE: 2016
